FAERS Safety Report 19581010 (Version 1)
Quarter: 2021Q3

REPORT INFORMATION
  Report Type: Spontaneous
  Country: US (occurrence: US)
  Receive Date: 20210719
  Receipt Date: 20210719
  Transmission Date: 20211014
  Serious: No
  Sender: FDA-Public Use
  Company Number: US-NOVOPROD-810071

PATIENT
  Age: 42 Year
  Sex: Female

DRUGS (2)
  1. OZEMPIC [Suspect]
     Active Substance: SEMAGLUTIDE
     Indication: WEIGHT CONTROL
     Dosage: 0.5 MG, QW
     Route: 058
     Dates: start: 20210201, end: 2021
  2. OZEMPIC [Suspect]
     Active Substance: SEMAGLUTIDE
     Dosage: 1 MG, QW
     Route: 058
     Dates: start: 2021

REACTIONS (7)
  - Pain in extremity [Not Recovered/Not Resolved]
  - Rash erythematous [Not Recovered/Not Resolved]
  - Tenderness [Not Recovered/Not Resolved]
  - Sensitive skin [Not Recovered/Not Resolved]
  - Weight loss poor [Not Recovered/Not Resolved]
  - Off label use [Not Recovered/Not Resolved]
  - Burning sensation [Not Recovered/Not Resolved]

NARRATIVE: CASE EVENT DATE: 2021
